FAERS Safety Report 13432728 (Version 3)
Quarter: 2017Q2

REPORT INFORMATION
  Report Type: Spontaneous
  Country: JP (occurrence: JP)
  Receive Date: 20170412
  Receipt Date: 20170530
  Transmission Date: 20170830
  Serious: Yes (Hospitalization, Other)
  Sender: FDA-Public Use
  Company Number: JP-GLAXOSMITHKLINE-JP2017JPN048890

PATIENT
  Age: 76 Year
  Sex: Male
  Weight: 64 kg

DRUGS (7)
  1. LOSARTAN POTASSIUM. [Concomitant]
     Active Substance: LOSARTAN POTASSIUM
     Dosage: UNK
  2. TRERIEF [Concomitant]
     Active Substance: ZONISAMIDE
     Dosage: UNK
  3. MADOPAR [Concomitant]
     Active Substance: BENSERAZIDE HYDROCHLORIDE\LEVODOPA
     Dosage: UNK
  4. REQUIP [Suspect]
     Active Substance: ROPINIROLE HYDROCHLORIDE
     Indication: PARKINSON^S DISEASE
     Dosage: 10 MG, QD
     Route: 048
  5. LAC-B [Concomitant]
     Active Substance: BIFIDOBACTERIUM SPP.
     Dosage: UNK
  6. FP (JAPAN) [Concomitant]
     Dosage: UNK
  7. GLACTIV [Concomitant]
     Active Substance: SITAGLIPTIN
     Dosage: UNK

REACTIONS (6)
  - Postrenal failure [Recovered/Resolved]
  - Renal impairment [Recovered/Resolved]
  - Scrotal oedema [Recovered/Resolved]
  - Penile oedema [Recovered/Resolved]
  - Urinary retention [Not Recovered/Not Resolved]
  - Oedema peripheral [Recovered/Resolved]

NARRATIVE: CASE EVENT DATE: 201612
